FAERS Safety Report 6716984-2 (Version None)
Quarter: 2010Q2

REPORT INFORMATION
  Report Type: 
  Country: None (occurrence: None)
  Receive Date: 20100510
  Receipt Date: 20100429
  Transmission Date: 20101027
  Serious: Yes (Other)
  Sender: FDA-Public Use
  Company Number: US-RB-007664-10

PATIENT
  Age: 72 Year
  Sex: Female

DRUGS (2)
  1. MUCINEX D [Suspect]
     Dosage: CONSUMER HAS BEEN TAKING HALF A TABLET EVERY 12 HOURS 3 DAYS
     Route: 048
     Dates: start: 20100416
  2. CONVENT [Concomitant]

REACTIONS (2)
  - OEDEMA PERIPHERAL [None]
  - WRONG TECHNIQUE IN DRUG USAGE PROCESS [None]
